FAERS Safety Report 25204893 (Version 1)
Quarter: 2025Q2

REPORT INFORMATION
  Report Type: Spontaneous
  Country: CN (occurrence: CN)
  Receive Date: 20250416
  Receipt Date: 20250416
  Transmission Date: 20250717
  Serious: Yes (Other)
  Sender: BEIGENE
  Company Number: CN-BEIGENE-BGN-2025-005776

PATIENT
  Age: 57 Year

DRUGS (6)
  1. TISLELIZUMAB [Suspect]
     Active Substance: TISLELIZUMAB
     Indication: Anaplastic thyroid cancer
  2. TISLELIZUMAB [Suspect]
     Active Substance: TISLELIZUMAB
     Indication: Squamous cell carcinoma
  3. TISLELIZUMAB [Suspect]
     Active Substance: TISLELIZUMAB
     Indication: Metastases to lymph nodes
  4. CATEQUENTINIB [Suspect]
     Active Substance: CATEQUENTINIB
     Indication: Anaplastic thyroid cancer
  5. CATEQUENTINIB [Suspect]
     Active Substance: CATEQUENTINIB
     Indication: Squamous cell carcinoma
  6. CATEQUENTINIB [Suspect]
     Active Substance: CATEQUENTINIB
     Indication: Metastases to lymph nodes

REACTIONS (4)
  - Myelosuppression [Unknown]
  - Skin injury [Unknown]
  - Neurological symptom [Unknown]
  - Fatigue [Unknown]
